FAERS Safety Report 5051972-6 (Version None)
Quarter: 2006Q3

REPORT INFORMATION
  Report Type: 
  Country: None (occurrence: None)
  Receive Date: 20060711
  Receipt Date: 20060616
  Transmission Date: 20061208
  Serious: Yes (Other)
  Sender: FDA-Public Use
  Company Number: US200606004146

PATIENT
  Age: 85 Year
  Sex: Female

DRUGS (1)
  1. EVISTA [Suspect]
     Indication: BREAST CANCER
     Dosage: 60 MG, ORAL
     Route: 048

REACTIONS (6)
  - ARTHRALGIA [None]
  - BREAST CANCER [None]
  - FATIGUE [None]
  - PYREXIA [None]
  - RASH [None]
  - THIRST [None]
